FAERS Safety Report 21843211 (Version 3)
Quarter: 2023Q1

REPORT INFORMATION
  Report Type: Spontaneous
  Country: GB (occurrence: GB)
  Receive Date: 20230110
  Receipt Date: 20230206
  Transmission Date: 20230417
  Serious: Yes (Hospitalization, Other)
  Sender: FDA-Public Use
  Company Number: GB-MYLANLABS-2022M1147550

PATIENT
  Age: 45 Year
  Sex: Male

DRUGS (20)
  1. CLOZARIL [Suspect]
     Active Substance: CLOZAPINE
     Indication: Schizophrenia
     Dosage: UNK
     Route: 048
     Dates: start: 20160222
  2. DOCUSATE [Concomitant]
     Active Substance: DOCUSATE
     Indication: Constipation
     Dosage: 1 DOSAGE FORM, BID (ONE TO BE TAKEN TWICE DAILY IF NEEDED)
     Route: 065
  3. EUMOVATE [Concomitant]
     Active Substance: CLOBETASONE BUTYRATE
     Indication: Rash
     Dosage: UNK (APPLY THINLY TWICE A DAY TO RASH)
     Route: 065
  4. ZERODOUBLE [Concomitant]
     Dosage: UNK(APPLY AS NEEDED, START DATE: 11-JAN-2023)
     Route: 065
  5. ALBUTEROL [Concomitant]
     Active Substance: ALBUTEROL
     Indication: Asthma
     Dosage: 2 DOSAGE FORM, QID(TWO PUFFS TO BE USED FOUR TIMES A DAY ONLY WHEN REQUIRED)
  6. DIAZEPAM [Concomitant]
     Active Substance: DIAZEPAM
     Dosage: 12 MILLIGRAM, QD(ONE TAKEN AT 8:00, 12:00,TWO TAKEN AT 18:00, 22:00, START DATE: 06-JAN-2023)
     Route: 065
  7. CALCIUM CARBONATE\CHOLECALCIFEROL [Concomitant]
     Active Substance: CALCIUM CARBONATE\CHOLECALCIFEROL
     Dosage: 1 DOSAGE FORM, BID (ONE TO BE TAKEN TWICE A DAY, START DATE: 06-JAN-2023)
     Route: 065
  8. FERROUS FUMARATE [Concomitant]
     Active Substance: FERROUS FUMARATE
     Dosage: 1 DOSAGE FORM, BID(ONE TO BE TAKEN TWICE A DAY, START DATE: 06-JAN-2023)
     Route: 065
  9. OLANZAPINE [Concomitant]
     Active Substance: OLANZAPINE
     Dosage: 1 DOSAGE FORM, PM (ONE TO BE TAKEN EACH NIGHT, START DATE: 06-JAN-2023))
     Route: 065
  10. SERTRALINE [Concomitant]
     Active Substance: SERTRALINE HYDROCHLORIDE
     Dosage: 2 DOSAGE FORM, QD (TAKE TWO DAILY, START DATE: 06-JAN-2023)
     Route: 065
  11. NAPROXEN [Concomitant]
     Active Substance: NAPROXEN
     Dosage: 1 DOSAGE FORM, BID (ONE TO BE TAKEN TWICE A DAY, START DATE: 06-JAN-2023)
     Route: 065
  12. LAMOTRIGINE [Concomitant]
     Active Substance: LAMOTRIGINE
     Dosage: 1 DOSAGE FORM, BID (ONE TO BE TAKEN TWICE A DAY, START DATE: 06-JAN-2023)
     Route: 065
  13. SCOPOLAMINE HYDROBROMIDE [Concomitant]
     Active Substance: SCOPOLAMINE HYDROBROMIDE
     Dosage: 2 DOSAGE FORM, PM (TWO TO BE TAKEN AT NIGHT, START DATE: 06-JAN-2023)
     Route: 065
  14. MIRTAZAPINE [Concomitant]
     Active Substance: MIRTAZAPINE
     Dosage: 1 DOSAGE FORM, PM (ONE TO BE TAKEN AT NIGHT, START DATE: 06-JAN-2023)
     Route: 065
  15. SIMVASTATIN [Concomitant]
     Active Substance: SIMVASTATIN
     Dosage: 1 DOSAGE FORM, PM (ONE TO BE TAKEN AT NIGHT, START DATE: 06-JAN-2023)
     Route: 065
  16. OMEPRAZOLE [Concomitant]
     Active Substance: OMEPRAZOLE
     Dosage: UNK (ONE TO TWO TO BE TAKEN EACH DAY, START DATE: 06-JAN-2023)
     Route: 065
  17. ZOPICLONE [Concomitant]
     Active Substance: ZOPICLONE
     Dosage: 1 DOSAGE FORM, PM (ONE TO BE TAKEN AT NIGHT, START DATE: 06-JAN-2023)
     Route: 065
  18. CETIRIZINE [Concomitant]
     Active Substance: CETIRIZINE HYDROCHLORIDE
     Dosage: 1 DOSAGE FORM, QD (ONE TO BE TAKEN DAILY, START DATE: 06-JAN-2023)
     Route: 065
  19. DIHYDROCODEINE [Concomitant]
     Active Substance: DIHYDROCODEINE
     Dosage: UNK (ONE OR TWO TO BE TAKEN FOUR TIMES A DAY WHEN REQUIRED, START DATE: 06-JAN-2023)
     Route: 065
  20. FLUTICASONE FUROATE\SALMETEROL XINAFOATE [Concomitant]
     Active Substance: FLUTICASONE FUROATE\SALMETEROL XINAFOATE
     Dosage: 2 DOSAGE FORM, BID (2 SPRAYS TWICE A DAY 12 HOURS APART USING VOLUMATIC WITH TIDAL BREATHING)
     Route: 045
     Dates: start: 20221111

REACTIONS (15)
  - Pneumonia [Unknown]
  - Infection [Unknown]
  - Platelet count decreased [Recovered/Resolved]
  - Neutrophil count decreased [Recovered/Resolved]
  - Anxiety [Unknown]
  - Eosinophil count decreased [Recovered/Resolved]
  - Drug monitoring procedure not performed [Unknown]
  - Haematocrit decreased [Unknown]
  - Blood folate abnormal [Not Recovered/Not Resolved]
  - Serum ferritin decreased [Unknown]
  - Blood glucose abnormal [Unknown]
  - Blood phosphorus decreased [Unknown]
  - Haemoglobin decreased [Unknown]
  - White blood cell count decreased [Recovered/Resolved]
  - Red blood cell count decreased [Unknown]

NARRATIVE: CASE EVENT DATE: 20201215
